FAERS Safety Report 18947897 (Version 2)
Quarter: 2022Q1

REPORT INFORMATION
  Report Type: Spontaneous
  Country: US (occurrence: US)
  Receive Date: 20210226
  Receipt Date: 20220309
  Transmission Date: 20220423
  Serious: Yes (Other)
  Sender: FDA-Public Use
  Company Number: US-009507513-2011USA010850

PATIENT
  Age: 32 Year
  Sex: Female
  Weight: 61.224 kg

DRUGS (2)
  1. NEXPLANON [Suspect]
     Active Substance: ETONOGESTREL
     Dosage: 1 IMPLANT
     Route: 059
     Dates: start: 20151007
  2. NEXPLANON [Suspect]
     Active Substance: ETONOGESTREL
     Dosage: 1 IMPLANT, OPPOSITE ARM
     Route: 059
     Dates: start: 20201009

REACTIONS (12)
  - Device dislocation [Unknown]
  - Mental disorder [Unknown]
  - Hypoaesthesia [Unknown]
  - Paraesthesia [Unknown]
  - Pain in extremity [Unknown]
  - Nerve injury [Unknown]
  - Device issue [Unknown]
  - Device placement issue [Not Recovered/Not Resolved]
  - Complication associated with device [Recovered/Resolved]
  - Complication of device removal [Not Recovered/Not Resolved]
  - Overdose [Unknown]
  - Incorrect product administration duration [Unknown]

NARRATIVE: CASE EVENT DATE: 20181007
